FAERS Safety Report 11132976 (Version 1)
Quarter: 2015Q2

REPORT INFORMATION
  Report Type: Spontaneous
  Country: TR (occurrence: TR)
  Receive Date: 20150522
  Receipt Date: 20150522
  Transmission Date: 20150821
  Serious: Yes (Hospitalization)
  Sender: FDA-Public Use
  Company Number: TR-NOVOPROD-449816

PATIENT
  Age: 48 Year
  Sex: Male
  Weight: 98 kg

DRUGS (5)
  1. NORDITROPIN [Suspect]
     Active Substance: SOMATROPIN
     Indication: GROWTH HORMONE DEFICIENCY
     Dosage: 0.6 MG, QD
     Route: 058
     Dates: start: 20120214
  2. EUTHYROX [Concomitant]
     Active Substance: LEVOTHYROXINE SODIUM
     Indication: THYROID HORMONE REPLACEMENT THERAPY
     Dosage: UNK, BID
     Route: 048
  3. TESTOGEL [Concomitant]
     Active Substance: TESTOSTERONE
     Indication: ANDROGENS ABNORMAL
     Dosage: BID
     Route: 065
  4. DESMOVITAL [Concomitant]
     Indication: DIURETIC THERAPY
     Dosage: BID
     Route: 065
  5. DELTACORTRIL                       /00016201/ [Concomitant]
     Indication: STEROID THERAPY
     Dosage: UNK
     Route: 048

REACTIONS (1)
  - Pituitary tumour recurrent [Recovered/Resolved]

NARRATIVE: CASE EVENT DATE: 20150429
